FAERS Safety Report 25699906 (Version 1)
Quarter: 2025Q3

REPORT INFORMATION
  Report Type: Spontaneous
  Country: EU (occurrence: EU)
  Receive Date: 20250819
  Receipt Date: 20250819
  Transmission Date: 20251021
  Serious: Yes (Other)
  Sender: RANBAXY
  Company Number: EU-SUN PHARMACEUTICAL INDUSTRIES LTD-2025R1-523352

PATIENT
  Age: 46 Year
  Sex: Male
  Weight: 93 kg

DRUGS (19)
  1. PREDNISOLONE [Suspect]
     Active Substance: PREDNISOLONE
     Indication: Joint stiffness
     Route: 065
  2. PREDNISOLONE [Suspect]
     Active Substance: PREDNISOLONE
     Indication: Pain
     Dosage: 50 MILLIGRAM, DAILY
     Route: 065
  3. PREDNISOLONE [Suspect]
     Active Substance: PREDNISOLONE
     Indication: Rheumatoid arthritis
     Dosage: 2.5 MILLIGRAM, DAILY
     Route: 065
     Dates: start: 201906
  4. PREDNISOLONE [Suspect]
     Active Substance: PREDNISOLONE
     Route: 065
     Dates: start: 201908
  5. FOLIC ACID [Suspect]
     Active Substance: FOLIC ACID
     Indication: Joint stiffness
     Route: 065
  6. FOLIC ACID [Suspect]
     Active Substance: FOLIC ACID
     Indication: Pain
  7. FOLIC ACID [Suspect]
     Active Substance: FOLIC ACID
     Indication: Rheumatoid arthritis
  8. METHOTREXATE [Suspect]
     Active Substance: METHOTREXATE
     Indication: Joint stiffness
     Dosage: 15 MILLIGRAM, DAILY (2 - 3 WEEKS)
     Route: 065
     Dates: start: 20181024
  9. METHOTREXATE [Suspect]
     Active Substance: METHOTREXATE
     Indication: Pain
  10. METHOTREXATE [Suspect]
     Active Substance: METHOTREXATE
     Indication: Rheumatoid arthritis
  11. ETORICOXIB [Concomitant]
     Active Substance: ETORICOXIB
     Indication: Joint stiffness
     Route: 065
  12. ETORICOXIB [Concomitant]
     Active Substance: ETORICOXIB
     Indication: Pain
  13. ETORICOXIB [Concomitant]
     Active Substance: ETORICOXIB
     Indication: Rheumatoid arthritis
  14. METHOTREXATE [Concomitant]
     Active Substance: METHOTREXATE
     Indication: Joint stiffness
     Dosage: 25 MILLIGRAM, WEEKLY
     Route: 058
  15. METHOTREXATE [Concomitant]
     Active Substance: METHOTREXATE
     Indication: Pain
  16. METHOTREXATE [Concomitant]
     Active Substance: METHOTREXATE
     Indication: Rheumatoid arthritis
  17. VITAMIN D3 [Suspect]
     Active Substance: CHOLECALCIFEROL
     Indication: Joint stiffness
     Route: 065
  18. VITAMIN D3 [Suspect]
     Active Substance: CHOLECALCIFEROL
     Indication: Pain
  19. VITAMIN D3 [Suspect]
     Active Substance: CHOLECALCIFEROL
     Indication: Rheumatoid arthritis

REACTIONS (1)
  - Condition aggravated [Unknown]
